FAERS Safety Report 10017087 (Version 1)
Quarter: 2014Q1

REPORT INFORMATION
  Report Type: Spontaneous
  Country: US (occurrence: US)
  Receive Date: 20140318
  Receipt Date: 20140318
  Transmission Date: 20141002
  Serious: Yes (Hospitalization)
  Sender: FDA-Public Use
  Company Number: US-BIOGENIDEC-2014BI023588

PATIENT
  Age: 47 Year
  Sex: Female

DRUGS (14)
  1. TECFIDERA [Suspect]
     Indication: MULTIPLE SCLEROSIS
     Route: 048
  2. BACLOFEN [Concomitant]
  3. BENADRYL ALLERGY [Concomitant]
  4. CYMBALTA [Concomitant]
  5. HYDROCORTISONE [Concomitant]
  6. LAMOTRIGINE [Concomitant]
  7. LIOTHYRONINE SODIUM [Concomitant]
  8. LYRICA [Concomitant]
  9. NAPROXEN SODIUM [Concomitant]
  10. PRILOSEC [Concomitant]
  11. SUDAFED 12 HOUR [Concomitant]
  12. SYNTHROID [Concomitant]
  13. TRAZODONE HCI [Concomitant]
  14. VITAMIN D-3 [Concomitant]

REACTIONS (1)
  - Surgery [Not Recovered/Not Resolved]
